FAERS Safety Report 10149213 (Version 1)
Quarter: 2014Q2

REPORT INFORMATION
  Report Type: Spontaneous
  Country: US (occurrence: None)
  Receive Date: 20140501
  Receipt Date: 20140501
  Transmission Date: 20141212
  Serious: Yes (Hospitalization)
  Sender: FDA-Public Use
  Company Number: None

PATIENT
  Age: 76 Year
  Sex: Male
  Weight: 77.3 kg

DRUGS (14)
  1. RIBAVIRIN [Suspect]
     Indication: HEPATITIS C
     Route: 048
     Dates: start: 20140124
  2. SOFOSBUVIR [Suspect]
     Indication: HEPATITIS C
     Route: 048
     Dates: start: 20140124
  3. ALPRAZOLAM [Concomitant]
  4. NORVASC [Concomitant]
  5. PLAVIX [Concomitant]
  6. COLCHICINE [Concomitant]
  7. FLONASE [Concomitant]
  8. PREVACID [Concomitant]
  9. LIDODERM [Concomitant]
  10. SUBLINGUAL NITROGLYCERIN [Concomitant]
  11. LYRICA [Concomitant]
  12. ECOTRIN [Concomitant]
  13. CELEBREX [Concomitant]
  14. VITAMIN D [Concomitant]

REACTIONS (4)
  - Dyspnoea [None]
  - Chest pain [None]
  - Anaemia macrocytic [None]
  - Thrombocytopenia [None]
